FAERS Safety Report 4372214-0 (Version None)
Quarter: 2004Q2

REPORT INFORMATION
  Report Type: 
  Country: None (occurrence: None)
  Receive Date: 20040602
  Receipt Date: 20040517
  Transmission Date: 20050107
  Serious: Yes (Hospitalization)
  Sender: FDA-Public Use
  Company Number: 8005373

PATIENT
  Age: 38 Year
  Sex: Male

DRUGS (3)
  1. KEPPRA [Suspect]
     Indication: EPILEPSY
     Dosage: 2500 MG PO
     Route: 048
     Dates: end: 20040205
  2. TRILEPTAL [Concomitant]
  3. URBANYL [Concomitant]

REACTIONS (2)
  - PANCYTOPENIA [None]
  - VERTIGO [None]
